FAERS Safety Report 4561008-9 (Version None)
Quarter: 2005Q1

REPORT INFORMATION
  Report Type: 
  Country: None (occurrence: None)
  Receive Date: 20050126
  Receipt Date: 20040713
  Transmission Date: 20050727
  Serious: No
  Sender: FDA-Public Use
  Company Number: US-BRISTOL-MYERS SQUIBB COMPANY-12639290

PATIENT
  Age: 66 Year
  Sex: Female
  Weight: 96 kg

DRUGS (7)
  1. GLUCOPHAGE [Suspect]
     Indication: DIABETES MELLITUS
     Dosage: THERAPY FROM:  ^3 YEARS AGO^; ON UNSPECIFIED DATE, DOSE INCREASED TO 500MG TWICE DAILY
     Route: 048
  2. ACTOS [Concomitant]
  3. LEVOXYL [Concomitant]
  4. VIOXX [Concomitant]
  5. ENALAPRIL [Concomitant]
  6. ZOCOR [Concomitant]
  7. FUROSEMIDE [Concomitant]

REACTIONS (2)
  - BLOOD GLUCOSE INCREASED [None]
  - DIARRHOEA [None]
